FAERS Safety Report 18659754 (Version 2)
Quarter: 2021Q1

REPORT INFORMATION
  Report Type: Spontaneous
  Country: PL (occurrence: PL)
  Receive Date: 20201224
  Receipt Date: 20210304
  Transmission Date: 20210419
  Serious: Yes (Other)
  Sender: FDA-Public Use
  Company Number: PL-ACCORD-211817

PATIENT
  Age: 22 Year
  Sex: Female

DRUGS (4)
  1. LEVETIRACETAM. [Suspect]
     Active Substance: LEVETIRACETAM
     Indication: EPILEPSY
     Route: 065
  2. ETHOSUXIMIDE. [Suspect]
     Active Substance: ETHOSUXIMIDE
     Indication: PRODUCT USED FOR UNKNOWN INDICATION
     Dosage: 1 GRAM, DAILY
     Route: 065
  3. ETHOSUXIMIDE. [Suspect]
     Active Substance: ETHOSUXIMIDE
     Indication: PRODUCT USED FOR UNKNOWN INDICATION
     Dosage: 1.25 GRAM
     Route: 065
  4. VALPROIC ACID. [Suspect]
     Active Substance: VALPROIC ACID
     Indication: EPILEPSY
     Route: 065

REACTIONS (9)
  - Treatment noncompliance [Unknown]
  - Loss of consciousness [Unknown]
  - Therapeutic product effect incomplete [Unknown]
  - Generalised tonic-clonic seizure [Unknown]
  - Drug resistance [Unknown]
  - Condition aggravated [Unknown]
  - Weight increased [Unknown]
  - Headache [Unknown]
  - Irritability [Unknown]
